FAERS Safety Report 10183515 (Version 2)
Quarter: 2014Q2

REPORT INFORMATION
  Report Type: Spontaneous
  Country: US (occurrence: US)
  Receive Date: 20140520
  Receipt Date: 20140520
  Transmission Date: 20141212
  Serious: No
  Sender: FDA-Public Use
  Company Number: US-ASTRAZENECA-2013SE81019

PATIENT
  Age: 78 Year
  Sex: Female
  Weight: 52.2 kg

DRUGS (2)
  1. ATACAND [Suspect]
     Route: 048
  2. CANDESARTAN HCT [Suspect]
     Indication: HYPERTENSION
     Route: 048

REACTIONS (7)
  - Malaise [Not Recovered/Not Resolved]
  - Sleep disorder [Not Recovered/Not Resolved]
  - Hypotension [Not Recovered/Not Resolved]
  - Thyroxine decreased [Unknown]
  - Pollakiuria [Unknown]
  - Adverse event [Unknown]
  - Cough [Unknown]
